FAERS Safety Report 7205314-8 (Version None)
Quarter: 2010Q4

REPORT INFORMATION
  Report Type: 
  Country: None (occurrence: None)
  Receive Date: 20101231
  Receipt Date: 20101217
  Transmission Date: 20110411
  Serious: Yes (Other)
  Sender: FDA-Public Use
  Company Number: US-CELGENEUS-163-20785-10081822

PATIENT
  Sex: Male

DRUGS (2)
  1. THALOMID [Suspect]
     Indication: MULTIPLE MYELOMA
     Route: 048
     Dates: start: 20040301
  2. THALOMID [Suspect]
     Dosage: 300-100MG
     Route: 048
     Dates: start: 20040701, end: 20050301

REACTIONS (3)
  - KERATITIS HERPETIC [None]
  - NEUROPATHY PERIPHERAL [None]
  - PROSTATE CANCER [None]
